FAERS Safety Report 19753720 (Version 2)
Quarter: 2021Q3

REPORT INFORMATION
  Report Type: Report from Study
  Country: None (occurrence: US)
  Receive Date: 20210826
  Receipt Date: 20210908
  Transmission Date: 20211014
  Serious: Yes (Other)
  Sender: FDA-Public Use
  Company Number: US-ABBVIE-21K-163-4050826-00

PATIENT
  Age: 24 Year
  Sex: Male

DRUGS (3)
  1. VENCLEXTA [Suspect]
     Active Substance: VENETOCLAX
     Indication: ACUTE MYELOID LEUKAEMIA (IN REMISSION)
     Dosage: ADMINISTER WITH A MEAL AND WATER AT APPROXIMATELY THE SAME TIME EACH DAY?DAY 2
     Route: 048
  2. VENCLEXTA [Suspect]
     Active Substance: VENETOCLAX
     Dosage: ADMINISTER WITH A MEAL AND WATER AT APPROXIMATELY THE SAME TIME EACH DAY
     Route: 048
     Dates: end: 2021
  3. VENCLEXTA [Suspect]
     Active Substance: VENETOCLAX
     Indication: NEOPLASM MALIGNANT
     Dosage: ADMINISTER WITH A MEAL AND WATER AT APPROXIMATELY THE SAME TIME EACH DAY?DAY 1
     Route: 048

REACTIONS (2)
  - Abscess [Unknown]
  - Off label use [Unknown]

NARRATIVE: CASE EVENT DATE: 202107
